FAERS Safety Report 4365586-4 (Version None)
Quarter: 2004Q2

REPORT INFORMATION
  Report Type: 
  Country: None (occurrence: None)
  Receive Date: 20040526
  Receipt Date: 20040517
  Transmission Date: 20050107
  Serious: Yes (Death, Life-Threatening, Disabling)
  Sender: FDA-Public Use
  Company Number: US-MERCK-0405USA01281

PATIENT
  Age: 49 Year
  Sex: Male

DRUGS (4)
  1. NEXIUM [Concomitant]
     Route: 065
     Dates: end: 20040514
  2. ZETIA [Suspect]
     Indication: HYPERCHOLESTEROLAEMIA
     Route: 048
     Dates: start: 20040218, end: 20040514
  3. PAXIL [Concomitant]
     Route: 065
     Dates: end: 20040514
  4. ZOCOR [Concomitant]
     Route: 048
     Dates: end: 20040514

REACTIONS (1)
  - MYOCARDIAL INFARCTION [None]
